FAERS Safety Report 17207876 (Version 1)
Quarter: 2019Q4

REPORT INFORMATION
  Report Type: Spontaneous
  Country: US (occurrence: US)
  Receive Date: 20191227
  Receipt Date: 20191227
  Transmission Date: 20200122
  Serious: Yes (Other)
  Sender: FDA-Public Use
  Company Number: US-JNJFOC-20191240860

PATIENT
  Sex: Male
  Weight: 106.69 kg

DRUGS (1)
  1. HALDOL [Suspect]
     Active Substance: HALOPERIDOL
     Indication: PRODUCT USED FOR UNKNOWN INDICATION
     Dosage: 5 MG AND 10 MG
     Route: 048

REACTIONS (2)
  - Weight increased [Recovered/Resolved]
  - Diabetes mellitus [Recovered/Resolved]
